FAERS Safety Report 6533660-X (Version None)
Quarter: 2010Q1

REPORT INFORMATION
  Report Type: 
  Country: None (occurrence: None)
  Receive Date: 20100111
  Receipt Date: 20100104
  Transmission Date: 20100710
  Serious: No
  Sender: FDA-Public Use
  Company Number: US-B.I. PHARMACEUTICALS,INC./RIDGEFIELD-2010-BP-00166BP

PATIENT
  Sex: Male

DRUGS (9)
  1. SPIRIVA [Suspect]
     Indication: CHRONIC OBSTRUCTIVE PULMONARY DISEASE
     Dosage: 18 MCG
     Route: 055
     Dates: start: 20091230
  2. SPIRIVA [Suspect]
     Dosage: 18 MCG
     Route: 055
     Dates: start: 20080101, end: 20090101
  3. XALATAN [Concomitant]
     Indication: GLAUCOMA
     Route: 031
     Dates: start: 20091118
  4. PREDNISONE [Concomitant]
     Indication: POLYMYALGIA RHEUMATICA
     Dates: start: 19900101
  5. ISOSORBIDE [Concomitant]
     Indication: ANGINA PECTORIS
     Dosage: 60 MG
     Dates: start: 19970101
  6. NITROGLYCERIN [Concomitant]
     Indication: ANGINA PECTORIS
     Route: 060
     Dates: start: 19970101
  7. LISINOPRIL [Concomitant]
     Indication: HYPERTENSION
     Dates: start: 20070101
  8. SIMVASTATIN [Concomitant]
     Indication: BLOOD CHOLESTEROL INCREASED
     Dates: start: 20040101
  9. TERAZOSIN HCL [Concomitant]
     Indication: BENIGN PROSTATIC HYPERPLASIA
     Dates: start: 20070101

REACTIONS (2)
  - EAR CONGESTION [None]
  - HYPOACUSIS [None]
